FAERS Safety Report 9039350 (Version 1)
Quarter: 2013Q1

REPORT INFORMATION
  Report Type: Spontaneous
  Country: US (occurrence: None)
  Receive Date: 20130123
  Receipt Date: 20130123
  Transmission Date: 20140127
  Serious: Yes (Hospitalization)
  Sender: FDA-Public Use
  Company Number: None

PATIENT
  Sex: Female

DRUGS (1)
  1. COPAXONE 20MG TEVA [Suspect]
     Indication: MULTIPLE SCLEROSIS
     Route: 058
     Dates: start: 20121121, end: 20130122

REACTIONS (8)
  - Palpitations [None]
  - Anxiety [None]
  - Vomiting [None]
  - Chest pain [None]
  - Chest discomfort [None]
  - Muscle spasms [None]
  - Dyspnoea [None]
  - Abdominal pain upper [None]
